FAERS Safety Report 8898453 (Version 4)
Quarter: 2013Q3

REPORT INFORMATION
  Report Type: Spontaneous
  Country: US (occurrence: US)
  Receive Date: 20121109
  Receipt Date: 20130723
  Transmission Date: 20140515
  Serious: Yes (Congenital Anomaly)
  Sender: FDA-Public Use
  Company Number: US-009507513-1203USA01559B1

PATIENT
  Sex: Male
  Weight: 3.68 kg

DRUGS (2)
  1. ISENTRESS [Suspect]
     Dosage: 2 DF, QD
     Route: 064
     Dates: start: 20120109, end: 20120613
  2. TRUVADA [Suspect]
     Dosage: 1 DF, QD
     Route: 064
     Dates: start: 20120109, end: 2012

REACTIONS (3)
  - Trisomy 21 [Unknown]
  - Foetal distress syndrome [Unknown]
  - Foetal exposure during pregnancy [Recovered/Resolved]
